FAERS Safety Report 16812731 (Version 2)
Quarter: 2019Q3

REPORT INFORMATION
  Report Type: Spontaneous
  Country: US (occurrence: US)
  Receive Date: 20190916
  Receipt Date: 20190924
  Transmission Date: 20191005
  Serious: Yes (Other)
  Sender: FDA-Public Use
  Company Number: US-ELI_LILLY_AND_COMPANY-US201908012122

PATIENT
  Sex: Female

DRUGS (5)
  1. GLIMEPIRIDE. [Concomitant]
     Active Substance: GLIMEPIRIDE
     Indication: TYPE 2 DIABETES MELLITUS
     Dosage: 4 MG
  2. HUMALOG [Suspect]
     Active Substance: INSULIN LISPRO
     Indication: DIABETES MELLITUS
     Dosage: 5 U, EACH MORNING
     Route: 058
     Dates: start: 201808
  3. BASAGLAR [Suspect]
     Active Substance: INSULIN GLARGINE
     Dosage: 22 U, BID
     Route: 058
  4. HUMALOG [Suspect]
     Active Substance: INSULIN LISPRO
     Dosage: 7 U, EACH EVENING
     Route: 058
     Dates: start: 201808
  5. BASAGLAR [Suspect]
     Active Substance: INSULIN GLARGINE
     Indication: DIABETES MELLITUS
     Dosage: 22 U, BID
     Route: 058

REACTIONS (12)
  - Cough [Recovering/Resolving]
  - Product dose omission [Unknown]
  - Blood glucose increased [Unknown]
  - Loss of consciousness [Unknown]
  - Blood glucose increased [Not Recovered/Not Resolved]
  - Malaise [Recovering/Resolving]
  - Injection site irritation [Recovering/Resolving]
  - Injection site pain [Recovering/Resolving]
  - Sneezing [Unknown]
  - Accidental underdose [Unknown]
  - Inappropriate schedule of product administration [Unknown]
  - Blood glucose decreased [Unknown]

NARRATIVE: CASE EVENT DATE: 201908
